FAERS Safety Report 5808385-6 (Version None)
Quarter: 2008Q3

REPORT INFORMATION
  Report Type: 
  Country: None (occurrence: None)
  Receive Date: 20080714
  Receipt Date: 20080703
  Transmission Date: 20090109
  Serious: Yes (Other)
  Sender: FDA-Public Use
  Company Number: PHHY2008ES12815

PATIENT
  Age: 60 Year
  Sex: Female

DRUGS (1)
  1. ZOMETA [Suspect]
     Dosage: 4 MG, UNK
     Dates: start: 20070601

REACTIONS (2)
  - OSTEONECROSIS [None]
  - PAIN IN JAW [None]
